FAERS Safety Report 7235037-0 (Version None)
Quarter: 2011Q1

REPORT INFORMATION
  Report Type: 
  Country: None (occurrence: None)
  Receive Date: 20110120
  Receipt Date: 20110114
  Transmission Date: 20110831
  Serious: Yes (Death, Other)
  Sender: FDA-Public Use
  Company Number: US-US-EMD SERONO, INC.-7036377

PATIENT
  Sex: Female

DRUGS (2)
  1. REBIF [Suspect]
     Indication: MULTIPLE SCLEROSIS
  2. BACLOFEN [Concomitant]
     Indication: MUSCULOSKELETAL STIFFNESS

REACTIONS (3)
  - BREAST CANCER [None]
  - MULTIPLE SCLEROSIS [None]
  - DEMENTIA [None]
